FAERS Safety Report 16097668 (Version 1)
Quarter: 2019Q1

REPORT INFORMATION
  Report Type: Spontaneous
  Country: NO (occurrence: NO)
  Receive Date: 20190320
  Receipt Date: 20190320
  Transmission Date: 20190418
  Serious: Yes (Other)
  Sender: FDA-Public Use
  Company Number: NO-ANIPHARMA-2019-NO-000001

PATIENT
  Age: 78 Year
  Sex: Female

DRUGS (9)
  1. CANDESARTAN. [Suspect]
     Active Substance: CANDESARTAN
     Indication: HYPERTENSION
     Dosage: 8 MG DAILY
     Route: 048
     Dates: end: 20170713
  2. NOBLIGAN [Suspect]
     Active Substance: TRAMADOL HYDROCHLORIDE
     Dosage: 50 MG DAILY
     Route: 048
     Dates: start: 20170629
  3. AMLODIPINE BESILATE [Concomitant]
     Active Substance: AMLODIPINE BESYLATE
     Dosage: 10 MG DAILY
     Route: 048
     Dates: start: 201707
  4. TRAMADOL. [Suspect]
     Active Substance: TRAMADOL
     Dosage: UNK
     Route: 065
  5. CALCIGRAN [Concomitant]
     Dosage: 1000 MG / 800 IE, EVERYDAY
     Route: 065
  6. BACTRIM [Suspect]
     Active Substance: SULFAMETHOXAZOLE\TRIMETHOPRIM
     Dosage: 1 DF DAILY
     Route: 048
     Dates: start: 20170629, end: 201707
  7. LIPITOR [Concomitant]
     Active Substance: ATORVASTATIN CALCIUM
     Dosage: 10 MG DAILY
     Route: 048
  8. VALTREX [Suspect]
     Active Substance: VALACYCLOVIR HYDROCHLORIDE
     Dosage: 1 G DAILY
     Route: 048
     Dates: start: 20170629, end: 201707
  9. NEURONTIN [Suspect]
     Active Substance: GABAPENTIN
     Dosage: 1200 MG DAILY / UNK
     Route: 048
     Dates: start: 20170629

REACTIONS (6)
  - Confusional state [Unknown]
  - Facial paresis [Unknown]
  - Acute kidney injury [Unknown]
  - Myoclonus [Unknown]
  - Ataxia [Unknown]
  - Dysarthria [Unknown]
